FAERS Safety Report 8923904 (Version 1)
Quarter: 2013Q1

REPORT INFORMATION
  Report Type: Spontaneous
  Country: US (occurrence: None)
  Receive Date: 20121121
  Receipt Date: 20121121
  Transmission Date: 20140127
  Serious: No
  Sender: FDA-Public Use
  Company Number: None

PATIENT
  Age: 42 Year
  Sex: Female

DRUGS (1)
  1. REQUIP [Suspect]

REACTIONS (3)
  - Obsessive-compulsive disorder [None]
  - Extrapyramidal disorder [None]
  - Fall [None]
